FAERS Safety Report 8805205 (Version 1)
Quarter: 2012Q4

REPORT INFORMATION
  Report Type: Spontaneous
  Country: US (occurrence: None)
  Receive Date: 20120919
  Receipt Date: 20120919
  Transmission Date: 20130627
  Serious: Yes (Other)
  Sender: FDA-Public Use
  Company Number: None

PATIENT
  Age: 16 Year
  Sex: Male

DRUGS (1)
  1. DEXTROAMPHETAMINE SULFATE [Suspect]
     Indication: ADHD
     Dosage: 30 XR Caps 2 Q AM 
2 mos early 2010
     Dates: start: 2010

REACTIONS (2)
  - Drug effect decreased [None]
  - Product substitution issue [None]
